FAERS Safety Report 24220296 (Version 2)
Quarter: 2024Q3

REPORT INFORMATION
  Report Type: Report from Study
  Country: NL (occurrence: NL)
  Receive Date: 20240817
  Receipt Date: 20240905
  Transmission Date: 20241016
  Serious: Yes (Other)
  Sender: VERITY PHARMACEUTICALS
  Company Number: NL-VER-202400051

PATIENT
  Sex: Male

DRUGS (3)
  1. TRIPTORELIN PAMOATE [Suspect]
     Active Substance: TRIPTORELIN PAMOATE
     Indication: Prostate cancer metastatic
     Dosage: SUSPENSION FOR INJECTION
     Route: 030
     Dates: start: 20170517
  2. TRIPTORELIN PAMOATE [Suspect]
     Active Substance: TRIPTORELIN PAMOATE
     Indication: Prostate cancer metastatic
     Dosage: SUSPENSION FOR INJECTION
     Route: 030
     Dates: start: 20240214
  3. TRIPTORELIN PAMOATE [Suspect]
     Active Substance: TRIPTORELIN PAMOATE
     Indication: Prostate cancer metastatic
     Dosage: SUSPENSION FOR INJECTION
     Route: 030
     Dates: start: 20240508

REACTIONS (1)
  - Terminal state [Unknown]
